FAERS Safety Report 15626636 (Version 5)
Quarter: 2019Q2

REPORT INFORMATION
  Report Type: Report from Study
  Country: GR (occurrence: GR)
  Receive Date: 20181116
  Receipt Date: 20190606
  Transmission Date: 20190711
  Serious: Yes (Hospitalization, Other)
  Sender: FDA-Public Use
  Company Number: GR-ROCHE-2202216

PATIENT
  Age: 40 Year
  Sex: Female
  Weight: 75 kg

DRUGS (6)
  1. CIPROXIN [CIPROFLOXACIN] [Concomitant]
     Indication: URINARY TRACT INFECTION
     Route: 048
     Dates: start: 20170914, end: 20170918
  2. CIPROXIN [CIPROFLOXACIN] [Concomitant]
     Route: 048
     Dates: start: 20180212
  3. ATEZOLIZUMAB. [Suspect]
     Active Substance: ATEZOLIZUMAB
     Indication: TRANSITIONAL CELL CARCINOMA
     Dosage: 03/JUL/2018, RECEIVED MOST RECENT DOSE OF ATEZOLIZUMAB PRIOR TO AE ONSET AT 12: 00
     Route: 042
     Dates: start: 20170809
  4. CIPROXIN [CIPROFLOXACIN] [Concomitant]
     Route: 048
     Dates: start: 20171025, end: 20171030
  5. CIPROXIN [CIPROFLOXACIN] [Concomitant]
     Route: 048
     Dates: start: 20171218, end: 20171227
  6. CIPROXIN [CIPROFLOXACIN] [Concomitant]
     Route: 048
     Dates: start: 20180713

REACTIONS (3)
  - Orthostatic hypotension [Not Recovered/Not Resolved]
  - Pneumonitis [Not Recovered/Not Resolved]
  - Bradycardia [Not Recovered/Not Resolved]

NARRATIVE: CASE EVENT DATE: 201809
